FAERS Safety Report 6182056-1 (Version None)
Quarter: 2009Q2

REPORT INFORMATION
  Report Type: 
  Country: None (occurrence: None)
  Receive Date: 20090507
  Receipt Date: 20090427
  Transmission Date: 20091009
  Serious: Yes (Hospitalization)
  Sender: FDA-Public Use
  Company Number: US-PFIZER INC-2009179591

PATIENT
  Sex: Female
  Weight: 106.58 kg

DRUGS (26)
  1. NAPROXEN [Suspect]
     Indication: OSTEOARTHRITIS
     Dosage: UNK
     Route: 048
     Dates: start: 20070503, end: 20090301
  2. BLINDED *PLACEBO [Suspect]
     Indication: OSTEOARTHRITIS
     Dosage: UNK
     Route: 048
     Dates: start: 20070503, end: 20090301
  3. BLINDED CELECOXIB [Suspect]
     Indication: OSTEOARTHRITIS
     Dosage: UNK
     Route: 048
     Dates: start: 20070503, end: 20090301
  4. IBUPROFEN [Suspect]
     Indication: OSTEOARTHRITIS
     Dosage: UNK
     Route: 048
     Dates: start: 20070503, end: 20090301
  5. NAPROXEN [Suspect]
     Dosage: UNK
     Route: 048
     Dates: start: 20070503, end: 20090301
  6. NAPROXEN [Suspect]
     Indication: RHEUMATOID ARTHRITIS
  7. BLINDED *PLACEBO [Suspect]
     Indication: RHEUMATOID ARTHRITIS
  8. BLINDED CELECOXIB [Suspect]
     Indication: RHEUMATOID ARTHRITIS
  9. IBUPROFEN [Suspect]
     Indication: RHEUMATOID ARTHRITIS
  10. NAPROXEN [Suspect]
  11. NEXIUM [Concomitant]
     Dosage: 40 MG, 1X/DAY
     Route: 048
     Dates: start: 20080111, end: 20090301
  12. NEXIUM [Concomitant]
     Dosage: 20 MG, 1X/DAY
     Route: 048
     Dates: start: 20070503, end: 20080110
  13. PRINZIDE [Concomitant]
     Dosage: UNK
     Route: 048
     Dates: start: 20060405
  14. LYRICA [Concomitant]
     Dosage: UNK
     Route: 048
     Dates: start: 20080930
  15. VENTOLIN [Concomitant]
     Dosage: UNK
     Route: 055
     Dates: start: 20071206
  16. K-DUR [Concomitant]
     Dosage: UNK
     Route: 048
     Dates: start: 20080930
  17. FUROSEMIDE [Concomitant]
     Dosage: UNK
     Route: 048
     Dates: start: 20080930
  18. ATENOLOL [Concomitant]
     Dosage: UNK
     Route: 048
     Dates: start: 20081105
  19. PRED MILD [Concomitant]
     Dosage: UNK
     Route: 047
     Dates: start: 20071206
  20. VALIUM [Concomitant]
     Dosage: UNK
     Route: 048
     Dates: start: 20071206
  21. AMITRIPTYLINE [Concomitant]
  22. MULTI-VITAMINS [Concomitant]
  23. DIFLUCAN [Concomitant]
  24. NEURONTIN [Concomitant]
  25. ASCORBIC ACID [Concomitant]
  26. PREDNISONE [Concomitant]
     Dosage: UNK
     Route: 048
     Dates: start: 20090218, end: 20090301

REACTIONS (1)
  - UPPER GASTROINTESTINAL HAEMORRHAGE [None]
